FAERS Safety Report 17570010 (Version 1)
Quarter: 2020Q1

REPORT INFORMATION
  Report Type: Spontaneous
  Country: FI (occurrence: FI)
  Receive Date: 20200323
  Receipt Date: 20200323
  Transmission Date: 20200409
  Serious: Yes (Other)
  Sender: FDA-Public Use
  Company Number: FI-SA-2020SA010646

PATIENT
  Age: 18 Year
  Sex: Female

DRUGS (1)
  1. AUBAGIO [Suspect]
     Active Substance: TERIFLUNOMIDE
     Indication: MULTIPLE SCLEROSIS
     Dosage: UNK
     Dates: start: 201908

REACTIONS (12)
  - Biliary dilatation [Unknown]
  - Abdominal pain [Recovering/Resolving]
  - Autoimmune pancreatitis [Unknown]
  - Blood calcium abnormal [Unknown]
  - Abdominal pain upper [Unknown]
  - Pancreatic enzymes abnormal [Unknown]
  - Blood alkaline phosphatase abnormal [Unknown]
  - Blood bilirubin abnormal [Unknown]
  - Amylase increased [Recovered/Resolved]
  - Diarrhoea [Unknown]
  - Blood triglycerides abnormal [Unknown]
  - Alanine aminotransferase abnormal [Unknown]

NARRATIVE: CASE EVENT DATE: 20191014
